FAERS Safety Report 6049499-8 (Version None)
Quarter: 2009Q1

REPORT INFORMATION
  Report Type: 
  Country: None (occurrence: None)
  Receive Date: 20090121
  Receipt Date: 20090105
  Transmission Date: 20090719
  Serious: Yes (Other)
  Sender: FDA-Public Use
  Company Number: 2009S1000283

PATIENT
  Age: 7 Year
  Sex: Male

DRUGS (6)
  1. EPIRUBICIN [Suspect]
     Indication: RHABDOMYOSARCOMA
     Dosage: 840 MG;
  2. ETOPOSIDE [Suspect]
     Indication: RHABDOMYOSARCOMA
     Dosage: 1175 MG;
  3. DACTINOMYCIN [Suspect]
     Indication: RHABDOMYOSARCOMA
     Dosage: 2.52 MG;
  4. CARBOPLATIN [Suspect]
     Indication: RHABDOMYOSARCOMA
     Dosage: 840 MG;
  5. IFOSFAMIDE [Suspect]
     Indication: RHABDOMYOSARCOMA
     Dosage: 18480 MG;
  6. VINCRISTINE [Suspect]
     Indication: RHABDOMYOSARCOMA
     Dosage: 10.92 MG;

REACTIONS (2)
  - LYMPHADENOPATHY [None]
  - THYROID CANCER [None]
